FAERS Safety Report 6906646-0 (Version None)
Quarter: 2010Q3

REPORT INFORMATION
  Report Type: 
  Country: None (occurrence: None)
  Receive Date: 20100708
  Receipt Date: 20090330
  Transmission Date: 20110219
  Serious: Yes (Other)
  Sender: FDA-Public Use
  Company Number: 2008082268

PATIENT
  Age: 44 Year
  Sex: Female
  Weight: 94.6 kg

DRUGS (5)
  1. CHANTIX [Suspect]
     Indication: SMOKING CESSATION THERAPY
     Dosage: 1 MG, 2X/DAY, ORAL
     Route: 048
     Dates: start: 20080403, end: 20080101
  2. TOPAMAX [Concomitant]
  3. LIPITOR [Concomitant]
  4. PROZAC [Concomitant]
  5. VERAPAMIL [Concomitant]

REACTIONS (3)
  - ACCIDENT AT HOME [None]
  - AGGRESSION [None]
  - NIGHTMARE [None]
